FAERS Safety Report 12045937 (Version 1)
Quarter: 2016Q1

REPORT INFORMATION
  Report Type: Spontaneous
  Country: US (occurrence: US)
  Receive Date: 20160209
  Receipt Date: 20160209
  Transmission Date: 20160526
  Serious: No
  Sender: FDA-Public Use
  Company Number: US-BIOGEN-2016BI00174221

PATIENT
  Sex: Female

DRUGS (3)
  1. TECFIDERA [Suspect]
     Active Substance: DIMETHYL FUMARATE
     Dates: start: 20160112, end: 20160113
  2. TECFIDERA [Suspect]
     Active Substance: DIMETHYL FUMARATE
     Indication: MULTIPLE SCLEROSIS
     Dates: start: 20151231, end: 20160106
  3. TECFIDERA [Suspect]
     Active Substance: DIMETHYL FUMARATE
     Dates: start: 20160112, end: 20160113

REACTIONS (6)
  - Pruritus [Unknown]
  - Hypersensitivity [Unknown]
  - Generalised erythema [Unknown]
  - Confusional state [Recovered/Resolved]
  - Burning sensation [Recovered/Resolved]
  - Paraesthesia [Unknown]
